FAERS Safety Report 19923480 (Version 4)
Quarter: 2022Q1

REPORT INFORMATION
  Report Type: Report from Study
  Country: US (occurrence: US)
  Receive Date: 20211005
  Receipt Date: 20220121
  Transmission Date: 20220424
  Serious: No
  Sender: FDA-Public Use
  Company Number: NVSC2021US227793

PATIENT
  Sex: Female

DRUGS (1)
  1. COSENTYX [Suspect]
     Active Substance: SECUKINUMAB
     Indication: Psoriasis
     Dosage: UNK
     Route: 058
     Dates: start: 20210916

REACTIONS (6)
  - Oedema peripheral [Unknown]
  - Peripheral swelling [Unknown]
  - Furuncle [Unknown]
  - Feeling abnormal [Unknown]
  - Fatigue [Unknown]
  - Muscle spasms [Unknown]
